FAERS Safety Report 21163843 (Version 2)
Quarter: 2022Q4

REPORT INFORMATION
  Report Type: Report from Study
  Country: MZ (occurrence: MZ)
  Receive Date: 20220803
  Receipt Date: 20221123
  Transmission Date: 20230113
  Serious: Yes (Other)
  Sender: FDA-Public Use
  Company Number: MZ-CIPLA LTD.-2022MZ04640

PATIENT
  Age: 19 Year
  Sex: Female

DRUGS (1)
  1. ALBENDAZOLE [Suspect]
     Active Substance: ALBENDAZOLE
     Indication: Malaria prophylaxis
     Dosage: 400 MILLIGRAM, SINGLE DOSE, ONCE IN A MONTH FOR 3 MONTHS
     Route: 048
     Dates: start: 20220318, end: 20220318

REACTIONS (2)
  - Abortion spontaneous [Unknown]
  - Exposure during pregnancy [Unknown]

NARRATIVE: CASE EVENT DATE: 20220101
